FAERS Safety Report 10039691 (Version 1)
Quarter: 2014Q1

REPORT INFORMATION
  Report Type: Spontaneous
  Country: US (occurrence: US)
  Receive Date: 20140326
  Receipt Date: 20140326
  Transmission Date: 20141002
  Serious: Yes (Hospitalization)
  Sender: FDA-Public Use
  Company Number: PHHY2014US034297

PATIENT
  Age: 22 Month
  Sex: Male

DRUGS (19)
  1. BUDESONIDE [Suspect]
  2. SALBUTAMOL [Interacting]
  3. SPIRONOLACTONE+HYDROCHLOROTHIAZIDE [Interacting]
  4. DOCUSATE SODIUM [Suspect]
  5. LANSOPRAZOLE [Suspect]
  6. FENTANYL [Interacting]
  7. ROCURONIUM BROMIDE [Interacting]
  8. MIDAZOLAM [Interacting]
  9. MORPHINE [Interacting]
  10. FUROSEMIDE [Interacting]
  11. VANCOMYCIN [Interacting]
  12. PARACETAMOL [Interacting]
  13. METHYLPREDNISOLONE [Interacting]
  14. CEFTRIAXONE [Interacting]
  15. IPRATROPIUM [Interacting]
  16. DEXMEDETOMIDINE [Interacting]
  17. VECURONIUM [Interacting]
  18. GLYCERIN [Interacting]
  19. POLYETHYLENE GLYCOL [Concomitant]

REACTIONS (6)
  - Long QT syndrome [Recovered/Resolved]
  - Electrocardiogram QT prolonged [Recovered/Resolved]
  - Electrocardiogram repolarisation abnormality [Recovered/Resolved]
  - Sinus bradycardia [Recovered/Resolved]
  - Respiratory acidosis [Unknown]
  - Hypocalcaemia [Unknown]
